FAERS Safety Report 4767263-4 (Version None)
Quarter: 2005Q3

REPORT INFORMATION
  Report Type: 
  Country: None (occurrence: None)
  Receive Date: 20050909
  Receipt Date: 20050825
  Transmission Date: 20060218
  Serious: Yes (Hospitalization)
  Sender: FDA-Public Use
  Company Number: 2005PV001206

PATIENT
  Age: 65 Year
  Sex: Female
  Weight: 105.2345 kg

DRUGS (11)
  1. BYETTA [Suspect]
     Indication: DIABETES MELLITUS NON-INSULIN-DEPENDENT
     Dosage: 10 MCG; BID;SC; 5 MCG; BID; SC
     Route: 058
     Dates: start: 20050708, end: 20050701
  2. BYETTA [Suspect]
     Indication: DIABETES MELLITUS NON-INSULIN-DEPENDENT
     Dosage: 10 MCG; BID;SC; 5 MCG; BID; SC
     Route: 058
     Dates: start: 20050701, end: 20050819
  3. METFORMIN [Concomitant]
  4. PULMICORT [Concomitant]
  5. GLUCOTROL XL [Concomitant]
  6. FLONASE [Concomitant]
  7. TIOTROPIUM BROMIDE [Concomitant]
  8. SPIRIVA [Concomitant]
  9. PRAVACHOL [Concomitant]
  10. VERAPAMIL [Concomitant]
  11. PREDNISONE [Concomitant]

REACTIONS (5)
  - ANAEMIA [None]
  - DIARRHOEA [None]
  - DYSPNOEA [None]
  - NAUSEA [None]
  - VOMITING [None]
